FAERS Safety Report 6543932-0 (Version None)
Quarter: 2010Q1

REPORT INFORMATION
  Report Type: 
  Country: None (occurrence: None)
  Receive Date: 20100120
  Receipt Date: 20100118
  Transmission Date: 20100710
  Serious: Yes (Hospitalization)
  Sender: FDA-Public Use
  Company Number: US-ELI_LILLY_AND_COMPANY-US201001003379

PATIENT
  Sex: Female

DRUGS (2)
  1. HUMALOG [Suspect]
     Indication: DIABETES MELLITUS
     Dosage: UNK, 4/D
     Dates: start: 20040101
  2. GLUCOTROL [Concomitant]

REACTIONS (7)
  - ARTERIAL REPAIR [None]
  - CORONARY ARTERIAL STENT INSERTION [None]
  - DYSPHAGIA [None]
  - MYOCARDIAL INFARCTION [None]
  - OESOPHAGEAL INJURY [None]
  - PROCEDURAL COMPLICATION [None]
  - REACTION TO AZO-DYES [None]
